FAERS Safety Report 4825899-6 (Version None)
Quarter: 2005Q4

REPORT INFORMATION
  Report Type: 
  Country: None (occurrence: None)
  Receive Date: 20051111
  Receipt Date: 20051031
  Transmission Date: 20060501
  Serious: Yes (Hospitalization)
  Sender: FDA-Public Use
  Company Number: US-JNJFOC-20051100425

PATIENT
  Age: 8 Year
  Sex: Female
  Weight: 24.2 kg

DRUGS (4)
  1. CHILDREN'S TYLENOL SOFT-CHEWS [Suspect]
     Route: 048
  2. CHILDREN'S TYLENOL SOFT-CHEWS [Suspect]
     Indication: DRUG USE FOR UNKNOWN INDICATION
     Dosage: UNKNOWN DOSE, ^}1 MO {= 3 MO^ (ESTIMATE), ORAL
     Route: 048
  3. MEBENDAZOLE [Suspect]
     Indication: DRUG USE FOR UNKNOWN INDICATION
     Dosage: 100 MG; ^}1 MO {=3 MO^, ORAL
     Route: 048
  4. STRATTERA [Suspect]
     Indication: DRUG USE FOR UNKNOWN INDICATION
     Dosage: 25MG; ^}1 MO {= 3 MO^ , ORAL
     Route: 048

REACTIONS (5)
  - HEPATIC FUNCTION ABNORMAL [None]
  - HYPERTENSION [None]
  - NAUSEA [None]
  - RASH PRURITIC [None]
  - UNEVALUABLE EVENT [None]
